FAERS Safety Report 8799261 (Version 1)
Quarter: 2012Q4

REPORT INFORMATION
  Report Type: 
  Country: DK (occurrence: FR)
  Receive Date: 20120920
  Receipt Date: 20120920
  Transmission Date: 20130627
  Serious: Yes (Hospitalization)
  Sender: FDA-Public Use
  Company Number: FR-FRI-1000038754

PATIENT
  Age: 87 Year
  Sex: Male

DRUGS (15)
  1. ESCITALOPRAM [Suspect]
     Indication: PRODUCT USED FOR UNKNOWN INDICATION
     Route: 048
  2. CALCIPARINE [Suspect]
     Indication: ATRIAL FIBRILLATION
     Dosage: (0.4 ml) - 3 DF daily
     Route: 058
     Dates: start: 20120804, end: 20120825
  3. KARDEGIC [Suspect]
     Indication: PRODUCT USED FOR UNKNOWN INDICATION
     Dosage: 160 mg
     Route: 048
  4. APROVEL [Concomitant]
  5. TRIVASTAL [Concomitant]
  6. SERESTA [Concomitant]
  7. TANGANIL [Concomitant]
  8. CORDARONE [Concomitant]
  9. FORLAX [Concomitant]
  10. DUPHALAC [Concomitant]
  11. EUPRESSYL [Concomitant]
  12. BACTRIM [Concomitant]
  13. AMLOR [Concomitant]
  14. LASILIX [Concomitant]
  15. LANZOPRAZOLE [Concomitant]

REACTIONS (3)
  - Abdominal wall haematoma [Not Recovered/Not Resolved]
  - Anaemia [Not Recovered/Not Resolved]
  - Thrombocytopenia [Not Recovered/Not Resolved]
